FAERS Safety Report 4728405-X (Version None)
Quarter: 2005Q3

REPORT INFORMATION
  Report Type: 
  Country: None (occurrence: None)
  Receive Date: 20050729
  Receipt Date: 20040812
  Transmission Date: 20060218
  Serious: No
  Sender: FDA-Public Use
  Company Number: US-GLAXOSMITHKLINE-A0521963A

PATIENT
  Age: 5 Month
  Sex: Male

DRUGS (2)
  1. ZANTAC [Suspect]
     Dosage: 1ML TWICE PER DAY
     Route: 048
     Dates: start: 20040401
  2. LEVSIN [Concomitant]

REACTIONS (5)
  - COUGH [None]
  - CRYING [None]
  - DYSGEUSIA [None]
  - RETCHING [None]
  - VOMITING [None]
